FAERS Safety Report 20092873 (Version 1)
Quarter: 2021Q4

REPORT INFORMATION
  Report Type: Spontaneous
  Country: US (occurrence: US)
  Receive Date: 20211120
  Receipt Date: 20211120
  Transmission Date: 20220304
  Serious: Yes (Death, Hospitalization)
  Sender: FDA-Public Use
  Company Number: US-JNJFOC-20211118482

PATIENT
  Age: 41 Year
  Sex: Male
  Weight: 94.4 kg

DRUGS (3)
  1. TYLENOL EXTRA STRENGTH [Suspect]
     Active Substance: ACETAMINOPHEN
     Indication: Suicide attempt
     Dosage: TOTAL DOSE OF INGESTION 40000-45000 MG OF ACETAMINOPHEN (80-90 TABS/CAPS)
     Route: 048
     Dates: start: 19990915, end: 19990915
  2. PROZAC [Concomitant]
     Active Substance: FLUOXETINE HYDROCHLORIDE
     Indication: Product used for unknown indication
     Dosage: STOPPED ONE WEEK PRIOR TO ADMISSION
     Route: 065
  3. DEPAKOTE [Concomitant]
     Active Substance: DIVALPROEX SODIUM
     Indication: Product used for unknown indication
     Dosage: STOPPED ONE WEEK PRIOR TO ADMISSION
     Route: 065

REACTIONS (11)
  - Brain oedema [Fatal]
  - Arrhythmia [Fatal]
  - Pleural effusion [Fatal]
  - Chest X-ray abnormal [Fatal]
  - Completed suicide [Fatal]
  - Acute hepatic failure [Fatal]
  - Intentional overdose [Fatal]
  - Multiple organ dysfunction syndrome [Fatal]
  - Cholelithiasis [Fatal]
  - Bacterial infection [Fatal]
  - Candida infection [Fatal]

NARRATIVE: CASE EVENT DATE: 19990925
